FAERS Safety Report 21358700 (Version 1)
Quarter: 2022Q3

REPORT INFORMATION
  Report Type: Spontaneous
  Country: IL (occurrence: None)
  Receive Date: 20220921
  Receipt Date: 20220921
  Transmission Date: 20221027
  Serious: Yes (Other)
  Sender: FDA-Public Use
  Company Number: IL-ROCHE-3178103

PATIENT
  Age: 46 Year
  Sex: Male

DRUGS (6)
  1. AVASTIN [Suspect]
     Active Substance: BEVACIZUMAB
     Indication: Rectal cancer
     Route: 065
  2. LEUCOVORIN CALCIUM [Concomitant]
     Active Substance: LEUCOVORIN CALCIUM
  3. FLUOROURACIL [Concomitant]
     Active Substance: FLUOROURACIL
  4. OXALIPLATIN [Concomitant]
     Active Substance: OXALIPLATIN
  5. IRINOTECAN [Concomitant]
     Active Substance: IRINOTECAN
  6. ERBITUX [Concomitant]
     Active Substance: CETUXIMAB

REACTIONS (4)
  - Metastases to lung [Unknown]
  - Myalgia [Unknown]
  - Disease progression [Unknown]
  - Neuropathy peripheral [Unknown]

NARRATIVE: CASE EVENT DATE: 20210401
